FAERS Safety Report 24411869 (Version 1)
Quarter: 2024Q4

REPORT INFORMATION
  Report Type: Spontaneous
  Country: US (occurrence: None)
  Receive Date: 20241007
  Receipt Date: 20241007
  Transmission Date: 20250114
  Serious: Yes (Hospitalization)
  Sender: Public
  Company Number: None

PATIENT
  Age: 71 Year
  Sex: Male

DRUGS (1)
  1. OSIMERTINIB [Suspect]
     Active Substance: OSIMERTINIB
     Indication: Surgery
     Dosage: FREQUENCY : DAILY;?
     Route: 048
     Dates: start: 20230207, end: 20240414

REACTIONS (2)
  - Cardiomyopathy [None]
  - Hypotension [None]

NARRATIVE: CASE EVENT DATE: 20240411
